FAERS Safety Report 6466205-3 (Version None)
Quarter: 2009Q4

REPORT INFORMATION
  Report Type: 
  Country: None (occurrence: None)
  Receive Date: 20091202
  Receipt Date: 20091119
  Transmission Date: 20100525
  Serious: Yes (Hospitalization)
  Sender: FDA-Public Use
  Company Number: PHEH2009US14165

PATIENT
  Sex: Female
  Weight: 46.259 kg

DRUGS (2)
  1. LOPRESSOR [Suspect]
     Dosage: 50 MG, BID
     Route: 048
     Dates: start: 20080901, end: 20090801
  2. LOPRESSOR [Suspect]
     Dosage: 25 MG, QD
     Route: 048
     Dates: start: 20090801, end: 20091016

REACTIONS (4)
  - ELECTROCARDIOGRAM ABNORMAL [None]
  - HOT FLUSH [None]
  - HYPERHIDROSIS [None]
  - VENTRICULAR EXTRASYSTOLES [None]
